FAERS Safety Report 8045018-5 (Version None)
Quarter: 2012Q1

REPORT INFORMATION
  Report Type: 
  Country: None (occurrence: None)
  Receive Date: 20120113
  Receipt Date: 20120111
  Transmission Date: 20120608
  Serious: Yes (Death, Hospitalization, Other)
  Sender: FDA-Public Use
  Company Number: PHEH2011US009031

PATIENT
  Sex: Male

DRUGS (14)
  1. AFINITOR [Suspect]
     Indication: RENAL CANCER
     Dosage: 10 MG, DAILY
     Route: 048
     Dates: start: 20110920, end: 20111021
  2. FLOMAX [Concomitant]
     Dosage: 0.4 MG, DAILY
     Route: 048
  3. ASPIRIN [Concomitant]
     Dosage: 81 MG, DAILY
     Route: 048
  4. XANAX [Concomitant]
     Indication: ANXIETY
     Dosage: 1 MG, Q4H
     Route: 049
  5. OXYCODONE HCL [Concomitant]
     Dosage: 60 MG, Q6H
     Route: 048
  6. GLYBURIDE [Concomitant]
     Dosage: 2.5 MG, DAILY
  7. FLONASE [Concomitant]
  8. DILAUDID [Concomitant]
     Indication: PAIN
     Dosage: 2 MG, PRN
     Route: 048
  9. CAPTOPRIL [Concomitant]
     Dosage: 50 MG, BID
     Route: 048
  10. SYNTHROID [Concomitant]
     Dosage: 120 UG, DAILY
  11. COREG [Concomitant]
     Dosage: 6.25 MG, BID
     Route: 048
  12. AFINITOR [Suspect]
     Indication: METASTATIC RENAL CELL CARCINOMA
  13. AMBIEN [Concomitant]
     Dosage: 10 MG, DAILY
  14. PAXIL [Concomitant]
     Dosage: 25 MG, DAILY

REACTIONS (14)
  - DYSPNOEA [None]
  - ATELECTASIS [None]
  - BACK PAIN [None]
  - MALIGNANT PLEURAL EFFUSION [None]
  - HEADACHE [None]
  - DEATH [None]
  - NEOPLASM PROGRESSION [None]
  - RASH [None]
  - CARDIAC FAILURE CONGESTIVE [None]
  - LYMPHADENOPATHY MEDIASTINAL [None]
  - METASTASES TO LIVER [None]
  - PERFORMANCE STATUS DECREASED [None]
  - METASTASES TO RETROPERITONEUM [None]
  - NEOPLASM MALIGNANT [None]
